FAERS Safety Report 6298178-0 (Version None)
Quarter: 2009Q3

REPORT INFORMATION
  Report Type: 
  Country: None (occurrence: None)
  Receive Date: 20090805
  Receipt Date: 20090730
  Transmission Date: 20100115
  Serious: Yes (Other)
  Sender: FDA-Public Use
  Company Number: US-AVENTIS-200916709US

PATIENT
  Sex: Male

DRUGS (1)
  1. APIDRA [Suspect]
     Dosage: DOSE: UNK - VIA PUMP
     Route: 051
     Dates: end: 20090701

REACTIONS (2)
  - DRUG DOSE OMISSION [None]
  - WEIGHT DECREASED [None]
